FAERS Safety Report 5407169-0 (Version None)
Quarter: 2007Q3

REPORT INFORMATION
  Report Type: 
  Country: None (occurrence: None)
  Receive Date: 20070807
  Receipt Date: 20070731
  Transmission Date: 20080115
  Serious: Yes (Disabling)
  Sender: FDA-Public Use
  Company Number: ES-MERCK-0708ESP00001

PATIENT
  Age: 32 Year
  Sex: Male

DRUGS (2)
  1. PROPECIA [Suspect]
     Indication: ALOPECIA
     Route: 048
     Dates: start: 20060101, end: 20070701
  2. MINOXIDIL [Concomitant]
     Indication: ALOPECIA
     Route: 061

REACTIONS (4)
  - AZOOSPERMIA [None]
  - SEMEN ABNORMAL [None]
  - SPERMATOZOA PROGRESSIVE MOTILITY DECREASED [None]
  - TESTICULAR DISORDER [None]
